FAERS Safety Report 10278889 (Version 1)
Quarter: 2014Q3

REPORT INFORMATION
  Report Type: Report from Study
  Country: IN (occurrence: IN)
  Receive Date: 20140706
  Receipt Date: 20140706
  Transmission Date: 20150326
  Serious: Yes (Hospitalization)
  Sender: FDA-Public Use
  Company Number: PHHY2014IN082251

PATIENT
  Age: 64 Year
  Sex: Female

DRUGS (3)
  1. ACLASTA [Suspect]
     Active Substance: ZOLEDRONIC ACID
     Indication: OSTEOPOROSIS
     Dosage: 5 MG/100ML/YEAR
     Route: 042
     Dates: start: 2013
  2. ACLASTA [Suspect]
     Active Substance: ZOLEDRONIC ACID
     Dosage: 5 MG/100ML/YEAR
     Route: 042
     Dates: start: 20140110
  3. MACALVIT [Concomitant]
     Indication: MINERAL SUPPLEMENTATION
     Dosage: UNK UKN, UNK
     Route: 048

REACTIONS (2)
  - Cataract [Recovering/Resolving]
  - Visual acuity reduced [Recovering/Resolving]
